FAERS Safety Report 5568667-2 (Version None)
Quarter: 2007Q4

REPORT INFORMATION
  Report Type: 
  Country: None (occurrence: None)
  Receive Date: 20071220
  Receipt Date: 20071207
  Transmission Date: 20080405
  Serious: Yes (Hospitalization)
  Sender: FDA-Public Use
  Company Number: JP-BAYER-200710945BYL

PATIENT
  Age: 24 Year
  Sex: Female

DRUGS (4)
  1. SH T 00186 [Suspect]
     Indication: DYSMENORRHOEA
     Dosage: TOTAL DAILY DOSE: 1 DF
     Route: 048
     Dates: start: 20071104, end: 20071105
  2. ACUATIM [Concomitant]
     Indication: FOLLICULITIS
     Route: 062
     Dates: start: 20071024, end: 20071024
  3. OHTA ISAN [Concomitant]
     Indication: STOMACH DISCOMFORT
     Route: 048
     Dates: start: 20071028, end: 20071028
  4. PRIMPERAN INJ [Concomitant]
     Indication: STOMACH DISCOMFORT
     Route: 048
     Dates: start: 20071031, end: 20071102

REACTIONS (2)
  - C-REACTIVE PROTEIN INCREASED [None]
  - HENOCH-SCHONLEIN PURPURA [None]
